FAERS Safety Report 6783685-4 (Version None)
Quarter: 2010Q2

REPORT INFORMATION
  Report Type: 
  Country: None (occurrence: None)
  Receive Date: 20100622
  Receipt Date: 20100611
  Transmission Date: 20101027
  Serious: Yes (Other)
  Sender: FDA-Public Use
  Company Number: US-SANOFI-AVENTIS-2010SA034660

PATIENT
  Age: 67 Year
  Sex: Male

DRUGS (1)
  1. APIDRA [Suspect]
     Dosage: VIA PUMP
     Dates: start: 20060101

REACTIONS (1)
  - BILE DUCT CANCER [None]
